FAERS Safety Report 4441585-9 (Version None)
Quarter: 2004Q3

REPORT INFORMATION
  Report Type: 
  Country: None (occurrence: None)
  Receive Date: 20040903
  Receipt Date: 20040820
  Transmission Date: 20050211
  Serious: Yes (Death)
  Sender: FDA-Public Use
  Company Number: 2004S1002519

PATIENT
  Age: 78 Year
  Sex: Female

DRUGS (14)
  1. CLOZAPINE [Suspect]
     Indication: SCHIZOPHRENIA
     Dosage: 50MG TID, ORAL
     Route: 048
     Dates: start: 20030616
  2. IPATROPIUM BROMIDE [Concomitant]
  3. GLIPIZIDE [Concomitant]
  4. HYDROCHLOROTHIAZIDE [Concomitant]
  5. LACTULOSE [Concomitant]
  6. INSULIN GLARGINE [Concomitant]
  7. LEVOTHYROXINE SODIUM [Concomitant]
  8. LISINOPRIL [Concomitant]
  9. LORAZEPAM [Concomitant]
  10. LIPASE [Concomitant]
  11. PREDNISOLONE OPHTHALMIC [Concomitant]
  12. LANSOPRAZOLE [Concomitant]
  13. DICLOFENAC SODIUM [Concomitant]
  14. SERTRALINE HCL [Concomitant]

REACTIONS (1)
  - DEATH [None]
